FAERS Safety Report 5151163-4 (Version None)
Quarter: 2006Q4

REPORT INFORMATION
  Report Type: 
  Country: None (occurrence: None)
  Receive Date: 20061114
  Receipt Date: 20061114
  Transmission Date: 20070319
  Serious: Yes (Other)
  Sender: FDA-Public Use
  Company Number: None

PATIENT
  Age: 29 Year
  Sex: Female

DRUGS (1)
  1. DEPO-PROVERA [Suspect]
     Dosage: IM  LEFT ARM
     Route: 030
     Dates: start: 20060919

REACTIONS (3)
  - DEVICE MALFUNCTION [None]
  - INJECTION SITE REACTION [None]
  - LACERATION [None]
